FAERS Safety Report 8514377 (Version 2)
Quarter: 2013Q1

REPORT INFORMATION
  Report Type: Spontaneous
  Country: CA (occurrence: CA)
  Receive Date: 20120416
  Receipt Date: 20130107
  Transmission Date: 20140127
  Serious: Yes (Other)
  Sender: FDA-Public Use
  Company Number: CA-PFIZER INC-2012091446

PATIENT
  Sex: Female

DRUGS (1)
  1. CHAMPIX [Suspect]
     Dosage: UNK
     Dates: start: 201203

REACTIONS (3)
  - Candida infection [Recovered/Resolved]
  - Oral discomfort [Not Recovered/Not Resolved]
  - Abdominal pain upper [Unknown]
